FAERS Safety Report 23752115 (Version 1)
Quarter: 2024Q2

REPORT INFORMATION
  Report Type: Spontaneous
  Country: US (occurrence: None)
  Receive Date: 20240417
  Receipt Date: 20240417
  Transmission Date: 20240716
  Serious: No
  Sender: FDA-Public Use
  Company Number: None

PATIENT
  Sex: Male
  Weight: 83.25 kg

DRUGS (1)
  1. TALVEY [Suspect]
     Active Substance: TALQUETAMAB-TGVS

REACTIONS (6)
  - Ageusia [None]
  - Dysgeusia [None]
  - Food aversion [None]
  - Alopecia [None]
  - Alopecia [None]
  - Weight decreased [None]
